FAERS Safety Report 8555285 (Version 4)
Quarter: 2012Q4

REPORT INFORMATION
  Report Type: Report from Study
  Country: US (occurrence: US)
  Receive Date: 20120510
  Receipt Date: 20121003
  Transmission Date: 20130627
  Serious: Yes (Hospitalization)
  Sender: FDA-Public Use
  Company Number: US-SANOFI-AVENTIS-2012SA024468

PATIENT
  Age: 79 Year
  Sex: Male
  Weight: 102.3 kg

DRUGS (17)
  1. CABAZITAXEL [Suspect]
     Indication: PROSTATE CANCER METASTATIC
     Route: 042
     Dates: start: 20120103, end: 20120103
  2. CABAZITAXEL [Suspect]
     Indication: PROSTATE CANCER METASTATIC
     Route: 042
     Dates: start: 20120326, end: 20120326
  3. PREDNISONE [Suspect]
     Indication: PROSTATE CANCER METASTATIC
     Route: 048
     Dates: start: 20120103, end: 20120402
  4. AGGRENOX [Concomitant]
     Indication: PROPHYLAXIS
     Route: 048
  5. BACLOFEN [Concomitant]
     Indication: DRUG THERAPY
     Route: 048
  6. GLIPIZIDE [Concomitant]
     Indication: DRUG THERAPY
     Route: 048
  7. AMLODIPINE BESILATE [Concomitant]
     Indication: DRUG THERAPY
     Route: 048
  8. ZOLOFT [Concomitant]
     Indication: DRUG THERAPY
     Route: 048
  9. TAMSULOSIN HYDROCHLORIDE [Concomitant]
     Indication: DRUG THERAPY
     Route: 048
  10. ATENOLOL [Concomitant]
     Indication: DRUG THERAPY
     Route: 048
  11. ROSUVASTATIN CALCIUM [Concomitant]
     Indication: DRUG THERAPY
     Route: 048
  12. INSULIN [Concomitant]
     Indication: DRUG THERAPY
     Route: 048
  13. GABAPENTIN [Concomitant]
     Indication: DRUG THERAPY
     Route: 048
  14. ASPIRIN [Concomitant]
     Indication: DRUG THERAPY
     Route: 048
  15. TYLENOL PM [Concomitant]
     Indication: DRUG THERAPY
     Route: 048
  16. POTASSIUM [Concomitant]
     Indication: POTASSIUM
     Route: 048
  17. MECLIZINE [Concomitant]
     Indication: DRUG THERAPY
     Route: 048

REACTIONS (2)
  - Syncope [Recovered/Resolved]
  - Atrial fibrillation [Recovered/Resolved]
